FAERS Safety Report 6705279-9 (Version None)
Quarter: 2010Q2

REPORT INFORMATION
  Report Type: 
  Country: None (occurrence: None)
  Receive Date: 20100430
  Receipt Date: 20100426
  Transmission Date: 20101027
  Serious: Yes (Other)
  Sender: FDA-Public Use
  Company Number: JP-GENENTECH-300689

PATIENT
  Sex: Female

DRUGS (2)
  1. ACTIVASE [Suspect]
     Indication: EMBOLIC STROKE
     Dosage: 24000000 IU, QD
     Route: 042
     Dates: start: 20100226, end: 20100226
  2. RADICUT [Concomitant]
     Indication: DRUG USE FOR UNKNOWN INDICATION
     Dosage: UNK
     Route: 065
     Dates: start: 20100226, end: 20100226

REACTIONS (2)
  - HAEMORRHAGIC CEREBRAL INFARCTION [None]
  - SHOCK [None]
